FAERS Safety Report 9696204 (Version 2)
Quarter: 2013Q4

REPORT INFORMATION
  Report Type: Report from Study
  Country: JP (occurrence: JP)
  Receive Date: 20131119
  Receipt Date: 20131119
  Transmission Date: 20140711
  Serious: Yes (Death, Hospitalization, Other)
  Sender: FDA-Public Use
  Company Number: JP-TAKEDA-TCI2013A02462

PATIENT
  Age: 85 Year
  Sex: Male
  Weight: 40 kg

DRUGS (8)
  1. RAMELTEON [Suspect]
     Indication: INSOMNIA
     Dosage: 8 MG, QD
     Route: 048
     Dates: start: 20120515, end: 20130104
  2. TAKEPRON [Concomitant]
     Dosage: 15 MG, QD
     Route: 048
     Dates: start: 20121229, end: 20130104
  3. PURSENNID                          /00571902/ [Concomitant]
     Dosage: 24 MG, 1DAYS
     Route: 048
     Dates: start: 20121229, end: 20130104
  4. MAGMITT [Concomitant]
     Dosage: 1980 MG, 1DAYS
     Route: 048
     Dates: start: 20121229, end: 20130104
  5. DECADRON                           /00016001/ [Concomitant]
     Dosage: 1.5 MG, 1DAYS
     Route: 048
     Dates: start: 20121229, end: 20130104
  6. EVIPROSTAT N [Concomitant]
     Dosage: 3 DF, 1DAYS
     Route: 048
     Dates: start: 20121229, end: 20130104
  7. LOXONIN [Concomitant]
     Dosage: 180 MG, 1DAYS
     Route: 048
     Dates: start: 20121229, end: 20130104
  8. LYRICA [Concomitant]
     Dosage: 75 MG, 1DAYS
     Route: 048
     Dates: start: 20121229, end: 20130104

REACTIONS (2)
  - Lung neoplasm malignant [Fatal]
  - Condition aggravated [Fatal]
